FAERS Safety Report 9802150 (Version 2)
Quarter: 2014Q1

REPORT INFORMATION
  Report Type: Spontaneous
  Country: FI (occurrence: FI)
  Receive Date: 20140107
  Receipt Date: 20140214
  Transmission Date: 20141002
  Serious: Yes (Death, Hospitalization, Disabling)
  Sender: FDA-Public Use
  Company Number: FI-FRI-1000052596

PATIENT
  Age: 72 Year
  Sex: Female

DRUGS (10)
  1. ARMOUR THYROID [Suspect]
     Indication: HYPOTHYROIDISM
     Dosage: 45 MG
     Route: 048
     Dates: start: 20130901, end: 20130928
  2. THYROXIN [Concomitant]
     Dosage: 25 MCG
     Dates: start: 20131001
  3. MINISUN [Concomitant]
     Dosage: 20 MCG
  4. MULTIVITA ASCORBIN [Concomitant]
     Dosage: 1000 MG
  5. KALISOL [Concomitant]
     Dosage: 30 ML
     Route: 048
  6. COHEMIN DEPOT [Concomitant]
  7. BIO-QINON Q10 [Concomitant]
     Dosage: 120 MG
  8. EMCONCOR CHF [Concomitant]
     Dosage: 5 MG
  9. ATROVENT COMP ECO [Concomitant]
  10. FLIXOTIDE EVOHALER [Concomitant]

REACTIONS (6)
  - Hyperthyroidism [Fatal]
  - Respiratory failure [Fatal]
  - Arrhythmia [Fatal]
  - Hyperhidrosis [Fatal]
  - Weight decreased [Fatal]
  - Dyspnoea [Fatal]
